FAERS Safety Report 9460798 (Version 1)
Quarter: 2013Q3

REPORT INFORMATION
  Report Type: Spontaneous
  Country: US (occurrence: US)
  Receive Date: 20130815
  Receipt Date: 20130815
  Transmission Date: 20140515
  Serious: No
  Sender: FDA-Public Use
  Company Number: US-009507513-1308USA006968

PATIENT
  Age: 7 Year
  Sex: Male

DRUGS (2)
  1. CLARITIN REDITABS [Suspect]
     Indication: PRODUCT USED FOR UNKNOWN INDICATION
     Dosage: 10 MG, ONCE
     Route: 048
     Dates: start: 20130805
  2. CLARITIN REDITABS [Suspect]
     Dosage: 10 MG, ONCE
     Route: 048
     Dates: start: 20130805

REACTIONS (1)
  - Overdose [Not Recovered/Not Resolved]
